FAERS Safety Report 21398788 (Version 1)
Quarter: 2022Q4

REPORT INFORMATION
  Report Type: Spontaneous
  Country: JP (occurrence: JP)
  Receive Date: 20221001
  Receipt Date: 20221001
  Transmission Date: 20230113
  Serious: Yes (Death)
  Sender: FDA-Public Use
  Company Number: JP-STRIDES ARCOLAB LIMITED-2022SP012509

PATIENT

DRUGS (7)
  1. DEXAMETHASONE [Suspect]
     Active Substance: DEXAMETHASONE
     Indication: Haemophagocytic lymphohistiocytosis
     Dosage: 10 MILLIGRAM/SQ. METER
     Route: 065
  2. DEXAMETHASONE [Suspect]
     Active Substance: DEXAMETHASONE
     Dosage: 5 MILLIGRAM/SQ. METER (FOR WEEKS 3-4)
     Route: 065
  3. DEXAMETHASONE [Suspect]
     Active Substance: DEXAMETHASONE
     Dosage: 2.5 MILLIGRAM/SQ. METER(FOR WEEKS 5-6)
     Route: 065
  4. DEXAMETHASONE [Suspect]
     Active Substance: DEXAMETHASONE
     Dosage: 1.25 MILLIGRAM/SQ. METER, FOR WEEK 7 AND 8 ONWARDS
     Route: 065
  5. CYCLOSPORINE [Suspect]
     Active Substance: CYCLOSPORINE
     Indication: Haemophagocytic lymphohistiocytosis
     Dosage: UNK (0.5 WEEK) (BODY WEIGHT BASED TWICE A WEEK DOSAGE FOR A TARGET TROUGH LEVEL OF 200 MICROGRAM/L)
     Route: 065
  6. ETOPOSIDE [Suspect]
     Active Substance: ETOPOSIDE
     Indication: Haemophagocytic lymphohistiocytosis
     Dosage: 150 MILLIGRAM/SQ. METER(TWICE WEEKLY)(ON WEEKS 1-2)
     Route: 042
  7. ETOPOSIDE [Suspect]
     Active Substance: ETOPOSIDE
     Dosage: 150 MILLIGRAM/SQ.METER(ONCE A WEEK ON WEEKS 3-8)
     Route: 042

REACTIONS (9)
  - Lung disorder [Fatal]
  - Renal disorder [Fatal]
  - Cardiac disorder [Fatal]
  - Liver disorder [Fatal]
  - Disseminated intravascular coagulation [Fatal]
  - Staphylococcal bacteraemia [Fatal]
  - Staphylococcal infection [Fatal]
  - Bacteraemia [Fatal]
  - Off label use [Unknown]
